FAERS Safety Report 9452509 (Version 1)
Quarter: 2013Q3

REPORT INFORMATION
  Report Type: Spontaneous
  Country: US (occurrence: None)
  Receive Date: 20130808
  Receipt Date: 20130808
  Transmission Date: 20140515
  Serious: Yes (Other)
  Sender: FDA-Public Use
  Company Number: None

PATIENT
  Age: 63 Year
  Sex: Female
  Weight: 104.33 kg

DRUGS (1)
  1. PROPOFOL [Suspect]
     Indication: ANAESTHESIA
     Dates: start: 20130717

REACTIONS (7)
  - Myalgia [None]
  - Tremor [None]
  - Chills [None]
  - Nausea [None]
  - Pyrexia [None]
  - White blood cell count increased [None]
  - Bacteraemia [None]
